FAERS Safety Report 6706606-9 (Version None)
Quarter: 2010Q2

REPORT INFORMATION
  Report Type: 
  Country: None (occurrence: None)
  Receive Date: 20100428
  Receipt Date: 20100226
  Transmission Date: 20101027
  Serious: Yes (Hospitalization)
  Sender: FDA-Public Use
  Company Number: CRC-10-039

PATIENT
  Sex: Male

DRUGS (1)
  1. EXTENDED PHENYTOIN SODIUM CAPSULES, USP,              SUN PH. [Suspect]
     Dosage: 2 CAPS @AM; 3 CAPS @PM
     Dates: start: 20091102, end: 20100129

REACTIONS (1)
  - THERAPEUTIC AGENT TOXICITY [None]
